FAERS Safety Report 6251716-6 (Version None)
Quarter: 2009Q2

REPORT INFORMATION
  Report Type: 
  Country: None (occurrence: None)
  Receive Date: 20090630
  Receipt Date: 20090615
  Transmission Date: 20091009
  Serious: Yes (Other)
  Sender: FDA-Public Use
  Company Number: BR-PFIZER INC-2009228723

PATIENT
  Age: 1 Month

DRUGS (1)
  1. EPELIN [Suspect]
     Indication: CONVULSION
     Dosage: 15 DROPS 2X/DAY
     Dates: start: 20080801

REACTIONS (1)
  - CONVULSION [None]
